FAERS Safety Report 5519671-1 (Version None)
Quarter: 2007Q4

REPORT INFORMATION
  Report Type: 
  Country: None (occurrence: None)
  Receive Date: 20071116
  Receipt Date: 20071107
  Transmission Date: 20080405
  Serious: Yes (Death, Hospitalization)
  Sender: FDA-Public Use
  Company Number: JP-JNJFOC-20071101285

PATIENT
  Sex: Male

DRUGS (3)
  1. DORIBAX [Suspect]
     Route: 041
     Dates: start: 20070615, end: 20070616
  2. DORIBAX [Suspect]
     Indication: PNEUMONIA
     Route: 041
     Dates: start: 20070615, end: 20070616
  3. PHENOBARBITAL TAB [Concomitant]
     Route: 065

REACTIONS (3)
  - BLOOD UREA INCREASED [None]
  - LIVER DISORDER [None]
  - PNEUMONIA [None]
